FAERS Safety Report 4262932-7 (Version None)
Quarter: 2004Q1

REPORT INFORMATION
  Report Type: 
  Country: None (occurrence: None)
  Receive Date: 20040102
  Receipt Date: 20040102
  Transmission Date: 20041129
  Serious: Yes (Other)
  Sender: FDA-Public Use
  Company Number: None

PATIENT
  Sex: Female
  Weight: 86.1834 kg

DRUGS (2)
  1. PAXIL [Suspect]
     Indication: ANXIETY
     Dosage: 40 MG DAILY ORAL
     Route: 048
     Dates: start: 19980201, end: 20031231
  2. PAXIL [Suspect]
     Indication: DEPRESSION
     Dosage: 40 MG DAILY ORAL
     Route: 048
     Dates: start: 19980201, end: 20031231

REACTIONS (6)
  - CRYING [None]
  - DRUG DEPENDENCE [None]
  - DRUG WITHDRAWAL SYNDROME [None]
  - FORMICATION [None]
  - SCREAMING [None]
  - TREMOR [None]
